FAERS Safety Report 9293658 (Version 5)
Quarter: 2014Q1

REPORT INFORMATION
  Report Type: Spontaneous
  Country: US (occurrence: US)
  Receive Date: 20130516
  Receipt Date: 20140207
  Transmission Date: 20141002
  Serious: Yes (Hospitalization, Disabling, Other)
  Sender: FDA-Public Use
  Company Number: US-009507513-1305USA008720

PATIENT
  Sex: Female
  Weight: 54.42 kg

DRUGS (3)
  1. NUVARING [Suspect]
     Indication: CONTRACEPTION
     Dosage: UNK
     Route: 067
     Dates: start: 200606, end: 200710
  2. NUVARING [Suspect]
     Indication: MENORRHAGIA
     Dosage: UNK
     Route: 067
     Dates: start: 201102, end: 20110608
  3. NECON 1/35 [Suspect]
     Indication: CONTRACEPTION
     Dosage: UNK
     Route: 048
     Dates: end: 201102

REACTIONS (13)
  - Pulmonary embolism [Recovered/Resolved with Sequelae]
  - Off label use [Unknown]
  - Gastritis [Unknown]
  - Haemorrhoids [Unknown]
  - Metrorrhagia [Unknown]
  - Urinary tract infection [Unknown]
  - Fungal infection [Unknown]
  - Cystitis [Unknown]
  - Smear cervix abnormal [Recovered/Resolved]
  - Bacterial vaginosis [Unknown]
  - Incorrect drug administration duration [Unknown]
  - Respiratory disorder [Unknown]
  - Vertigo [Unknown]
